FAERS Safety Report 5308206-4 (Version None)
Quarter: 2007Q1

REPORT INFORMATION
  Report Type: 
  Country: None (occurrence: None)
  Receive Date: 20070201
  Receipt Date: 20061222
  Transmission Date: 20070707
  Serious: No
  Sender: FDA-Public Use
  Company Number: 2006PV027324

PATIENT
  Age: 59 Year
  Sex: Female
  Weight: 101.6057 kg

DRUGS (3)
  1. BYETTA [Suspect]
     Indication: DIABETES MELLITUS NON-INSULIN-DEPENDENT
     Dosage: 5 MCG;BID; SC
     Route: 058
     Dates: start: 20061218
  2. GLUCOPHAGE [Concomitant]
  3. SYNTHROID [Concomitant]

REACTIONS (4)
  - ANOREXIA [None]
  - DYSGEUSIA [None]
  - HEADACHE [None]
  - VISION BLURRED [None]
